FAERS Safety Report 13441533 (Version 2)
Quarter: 2017Q2

REPORT INFORMATION
  Report Type: Report from Study
  Country: None (occurrence: US)
  Receive Date: 20170414
  Receipt Date: 20170414
  Transmission Date: 20170830
  Serious: Yes (Other)
  Sender: FDA-Public Use
  Company Number: US-ABBVIE-17K-163-1937363-00

PATIENT
  Age: 67 Year
  Sex: Female

DRUGS (3)
  1. HUMIRA [Suspect]
     Active Substance: ADALIMUMAB
     Indication: RHEUMATOID ARTHRITIS
  2. HUMIRA [Suspect]
     Active Substance: ADALIMUMAB
     Indication: CROHN^S DISEASE
     Route: 058
  3. PENTASA [Concomitant]
     Active Substance: MESALAMINE
     Indication: COLITIS ULCERATIVE

REACTIONS (18)
  - Mean cell volume decreased [Unknown]
  - Constipation [Recovered/Resolved]
  - Gastrointestinal stoma complication [Recovered/Resolved]
  - Abdominal pain upper [Recovered/Resolved]
  - Stoma site erythema [Recovered/Resolved]
  - Spinal osteoarthritis [Not Recovered/Not Resolved]
  - Gallbladder enlargement [Unknown]
  - Blood urea nitrogen/creatinine ratio increased [Unknown]
  - Mean cell haemoglobin decreased [Unknown]
  - Subcutaneous emphysema [Not Recovered/Not Resolved]
  - Acquired cystic kidney disease [Unknown]
  - Bladder dilatation [Unknown]
  - Blood glucose increased [Unknown]
  - Splenic granuloma [Unknown]
  - Red blood cell sedimentation rate increased [Unknown]
  - Colostomy [Unknown]
  - Stoma site pain [Unknown]
  - Intestinal dilatation [Unknown]

NARRATIVE: CASE EVENT DATE: 2016
